FAERS Safety Report 5412580-8 (Version None)
Quarter: 2007Q3

REPORT INFORMATION
  Report Type: 
  Country: None (occurrence: None)
  Receive Date: 20070813
  Receipt Date: 20070808
  Transmission Date: 20080115
  Serious: Yes (Hospitalization)
  Sender: FDA-Public Use
  Company Number: FR-BRISTOL-MYERS SQUIBB COMPANY-13873872

PATIENT
  Age: 46 Year
  Sex: Female
  Weight: 55 kg

DRUGS (6)
  1. REYATAZ [Suspect]
     Indication: HIV INFECTION
     Route: 048
     Dates: start: 20060710, end: 20070701
  2. TELZIR [Suspect]
     Route: 048
     Dates: start: 20060710
  3. EFFEXOR [Concomitant]
  4. LARGACTIL [Concomitant]
  5. NEURONTIN [Concomitant]
  6. CLONAZEPAM [Concomitant]

REACTIONS (2)
  - CALCULUS URINARY [None]
  - CYSTITIS HAEMORRHAGIC [None]
